FAERS Safety Report 6876652-3 (Version None)
Quarter: 2010Q3

REPORT INFORMATION
  Report Type: 
  Country: None (occurrence: None)
  Receive Date: 20100727
  Receipt Date: 20100715
  Transmission Date: 20110219
  Serious: Yes (Hospitalization)
  Sender: FDA-Public Use
  Company Number: GB-ROCHE-695678

PATIENT
  Sex: Female
  Weight: 61.7 kg

DRUGS (5)
  1. CAPECITABINE [Suspect]
     Indication: BREAST CANCER
     Dosage: LAST DOSE PRIOR TO SAE:  28 MARCH 2010.CUMULATIVE DOSE REPORTED:168 GRAM.
     Route: 048
     Dates: start: 20091130
  2. DOCETAXEL [Suspect]
     Indication: BREAST CANCER
     Dosage: LAST DOSE PRIOR TO SAE:22 MARCH 2009, CUMULATIVE DOSE: 720 MG.
     Route: 042
     Dates: start: 20091130
  3. ASPIRIN [Concomitant]
     Indication: HYPERTENSION
     Route: 048
     Dates: start: 20020210
  4. ESOMEPRAZOLE MAGNESIUM [Concomitant]
     Route: 048
     Dates: end: 20100406
  5. LERCANIDIPINE [Concomitant]
     Indication: HYPERTENSION
     Route: 048

REACTIONS (2)
  - NEUTROPENIC INFECTION [None]
  - TRAUMATIC HAEMATOMA [None]
